FAERS Safety Report 14974514 (Version 5)
Quarter: 2019Q2

REPORT INFORMATION
  Report Type: Report from Study
  Country: CA (occurrence: CA)
  Receive Date: 20180605
  Receipt Date: 20190529
  Transmission Date: 20190711
  Serious: Yes (Hospitalization)
  Sender: FDA-Public Use
  Company Number: CA-OTSUKA-2017_013012

PATIENT
  Age: 60 Year
  Sex: Male

DRUGS (2)
  1. ABILIFY MAINTENA [Suspect]
     Active Substance: ARIPIPRAZOLE
     Indication: SCHIZOPHRENIA
     Dosage: 400 MG MONTHLY
     Route: 030
     Dates: start: 20170508
  2. ABILIFY MAINTENA [Suspect]
     Active Substance: ARIPIPRAZOLE
     Dosage: 400MG/Q 28 DAYS
     Route: 030

REACTIONS (4)
  - Failure to thrive [Not Recovered/Not Resolved]
  - Blood pressure decreased [Recovered/Resolved]
  - Inappropriate schedule of product administration [Unknown]
  - Patient uncooperative [Not Recovered/Not Resolved]

NARRATIVE: CASE EVENT DATE: 20190522
